FAERS Safety Report 8457490-7 (Version None)
Quarter: 2012Q2

REPORT INFORMATION
  Report Type: 
  Country: None (occurrence: None)
  Receive Date: 20120622
  Receipt Date: 20120613
  Transmission Date: 20120825
  Serious: Yes (Hospitalization, Other)
  Sender: FDA-Public Use
  Company Number: BR-AMGEN-BRASP2012037514

PATIENT
  Age: 48 Year
  Sex: Female
  Weight: 74 kg

DRUGS (6)
  1. ENBREL [Suspect]
     Indication: RHEUMATOID ARTHRITIS
     Dosage: 50 MG, ONCE WEEKLY
     Route: 058
     Dates: start: 20081001
  2. WARFARIN SODIUM [Concomitant]
     Dosage: UNK
  3. PROPRANOLOL [Concomitant]
     Dosage: UNK
  4. LANSOPRAZOLE [Concomitant]
     Dosage: UNK
  5. PREDNISONE TAB [Concomitant]
     Dosage: UNK, 2X/DAY
  6. LEXOTAN [Concomitant]
     Dosage: UNK

REACTIONS (9)
  - INTESTINAL POLYP [None]
  - ABDOMINAL PAIN [None]
  - OEDEMA PERIPHERAL [None]
  - ASTHENIA [None]
  - THROMBOSIS [None]
  - HAEMORRHAGE [None]
  - INTESTINAL HAEMORRHAGE [None]
  - ARTERIAL OCCLUSIVE DISEASE [None]
  - SYNCOPE [None]
